FAERS Safety Report 20860841 (Version 1)
Quarter: 2022Q2

REPORT INFORMATION
  Report Type: Report from Study
  Country: CA (occurrence: CA)
  Receive Date: 20220523
  Receipt Date: 20220523
  Transmission Date: 20220721
  Serious: Yes (Hospitalization, Other)
  Sender: FDA-Public Use
  Company Number: CA-JNJFOC-20210919155

PATIENT
  Age: 38 Year
  Sex: Male

DRUGS (1)
  1. SIMPONI [Suspect]
     Active Substance: GOLIMUMAB
     Indication: Ankylosing spondylitis
     Route: 058
     Dates: start: 20210420

REACTIONS (6)
  - Systemic lupus erythematosus [Unknown]
  - Immunosuppression [Unknown]
  - Skull fracture [Unknown]
  - Cataract [Not Recovered/Not Resolved]
  - Inappropriate schedule of product administration [Unknown]
  - Eye infection [Unknown]

NARRATIVE: CASE EVENT DATE: 20210701
